FAERS Safety Report 22643757 (Version 1)
Quarter: 2023Q2

REPORT INFORMATION
  Report Type: Spontaneous
  Country: RO (occurrence: RO)
  Receive Date: 20230627
  Receipt Date: 20230627
  Transmission Date: 20230721
  Serious: Yes (Life-Threatening, Other)
  Sender: FDA-Public Use
  Company Number: RO-AstraZeneca-2023A108748

PATIENT
  Sex: Male
  Weight: 3 kg

DRUGS (1)
  1. SYNAGIS [Suspect]
     Active Substance: PALIVIZUMAB
     Indication: Antiviral prophylaxis
     Dosage: EVERY 4 WEEKS
     Route: 030
     Dates: start: 202212

REACTIONS (3)
  - Cardio-respiratory arrest [Recovered/Resolved]
  - Apnoea [Unknown]
  - Seizure [Unknown]
